FAERS Safety Report 7503915-0 (Version None)
Quarter: 2011Q2

REPORT INFORMATION
  Report Type: 
  Country: None (occurrence: None)
  Receive Date: 20110525
  Receipt Date: 20110502
  Transmission Date: 20111010
  Serious: Yes (Other)
  Sender: FDA-Public Use
  Company Number: US-BAYER-2011-014779

PATIENT
  Age: 24 Year
  Sex: Female
  Weight: 92.971 kg

DRUGS (4)
  1. YAZ [Suspect]
     Indication: CONTRACEPTION
     Dosage: UNK
     Route: 048
     Dates: start: 20070801, end: 20090626
  2. FLUCONAZOLE [Concomitant]
     Indication: VULVOVAGINAL CANDIDIASIS
     Dosage: UNK
     Dates: start: 20090611
  3. IBUPROFEN [Concomitant]
     Indication: PAIN
     Dosage: UNK UNK, PRN
  4. YASMIN [Suspect]
     Indication: CONTRACEPTION
     Dosage: UNK
     Route: 048
     Dates: start: 20070801, end: 20090626

REACTIONS (1)
  - DEEP VEIN THROMBOSIS [None]
